FAERS Safety Report 7689439-9 (Version None)
Quarter: 2011Q3

REPORT INFORMATION
  Report Type: 
  Country: None (occurrence: None)
  Receive Date: 20110817
  Receipt Date: 20110811
  Transmission Date: 20111222
  Serious: Yes (Other)
  Sender: FDA-Public Use
  Company Number: JP-B.I. PHARMACEUTICALS,INC./RIDGEFIELD-2011-BP-16680NB

PATIENT
  Age: 65 Year
  Sex: Male

DRUGS (15)
  1. LANSOPRAZOLE [Concomitant]
     Route: 065
  2. LIPIDIL [Concomitant]
     Route: 065
  3. HALCION [Concomitant]
     Route: 065
  4. LANIRAPID [Concomitant]
     Route: 065
  5. GANATON [Concomitant]
     Route: 065
  6. RISLAMID [Concomitant]
     Route: 065
  7. ZETIA [Concomitant]
     Route: 065
  8. RINDERON-VG [Concomitant]
     Route: 065
  9. ALPRAZOLAM [Concomitant]
     Route: 065
  10. DIAZEPAM [Concomitant]
     Route: 065
  11. PRADAXA [Suspect]
     Indication: ATRIAL FIBRILLATION
     Dosage: 300 MG
     Route: 048
     Dates: start: 20110607, end: 20110628
  12. ZOLOFT [Concomitant]
     Route: 065
  13. ATARAX [Concomitant]
     Route: 065
  14. SELBEX [Concomitant]
     Route: 065
  15. DORAL [Concomitant]
     Route: 065

REACTIONS (2)
  - BLADDER CANCER [None]
  - URINARY BLADDER HAEMORRHAGE [None]
